FAERS Safety Report 21128566 (Version 2)
Quarter: 2022Q3

REPORT INFORMATION
  Report Type: Other
  Country: US (occurrence: None)
  Receive Date: 20220725
  Receipt Date: 20220831
  Transmission Date: 20221027
  Serious: Yes (Hospitalization, Other)
  Sender: FDA-Public Use
  Company Number: US-ROCHE-3145653

PATIENT
  Sex: Female
  Weight: 81 kg

DRUGS (3)
  1. ACTEMRA [Suspect]
     Active Substance: TOCILIZUMAB
     Indication: Rheumatoid arthritis
     Dosage: INFUSE 680MG INTRAVENOUSLY EVERY 4 WEEK(S), RECENT INFUSION PRIOR TO THE ADVERSE EVENT WAS 10/JUL/20
     Route: 042
  2. ACTEMRA [Suspect]
     Active Substance: TOCILIZUMAB
     Dosage: INFUSE 680MG INTRAVENOUSLY EVERY 4 WEEK(S)
     Route: 042
  3. ACTEMRA [Suspect]
     Active Substance: TOCILIZUMAB
     Dosage: 640 MG MONTHLY
     Route: 042
     Dates: start: 201305

REACTIONS (2)
  - Pain [Unknown]
  - Device related infection [Recovered/Resolved]
